FAERS Safety Report 6266006-5 (Version None)
Quarter: 2009Q3

REPORT INFORMATION
  Report Type: 
  Country: None (occurrence: None)
  Receive Date: 20090708
  Receipt Date: 20090624
  Transmission Date: 20100115
  Serious: Yes (Death)
  Sender: FDA-Public Use
  Company Number: 1000007034

PATIENT
  Sex: Female

DRUGS (1)
  1. DINOPROSTONE (DINOPROSTONE) (SUPPOSITORY) [Suspect]
     Indication: LABOUR INDUCTION
     Dosage: 10 MG, VAGINAL
     Route: 067
     Dates: start: 20090101

REACTIONS (3)
  - ANAPHYLACTOID SYNDROME OF PREGNANCY [None]
  - DRUG EXPOSURE DURING PREGNANCY [None]
  - UTERINE SPASM [None]
